FAERS Safety Report 11632770 (Version 1)
Quarter: 2015Q4

REPORT INFORMATION
  Report Type: Spontaneous
  Country: None (occurrence: None)
  Receive Date: 20151014
  Receipt Date: 20151014
  Transmission Date: 20160304
  Serious: Yes (Other)
  Sender: FDA-Public Use
  Company Number: None

PATIENT
  Age: 58 Year
  Sex: Female

DRUGS (6)
  1. VITAMIN D [Suspect]
     Active Substance: CHOLECALCIFEROL
  2. PRAVASTATIN [Concomitant]
     Active Substance: PRAVASTATIN\PRAVASTATIN SODIUM
  3. LIRAGLUTIDE 6MG/ML PDS290 [Suspect]
     Active Substance: LIRAGLUTIDE
     Indication: DIABETES MELLITUS
  4. LISINOPRIL. [Concomitant]
     Active Substance: LISINOPRIL
  5. DULOXETINE. [Concomitant]
     Active Substance: DULOXETINE
  6. CALCIUM CARB [Concomitant]

REACTIONS (2)
  - Rash [None]
  - Urticaria [None]

NARRATIVE: CASE EVENT DATE: 20151007
